FAERS Safety Report 5490731-7 (Version None)
Quarter: 2007Q4

REPORT INFORMATION
  Report Type: 
  Country: None (occurrence: None)
  Receive Date: 20071019
  Receipt Date: 20071012
  Transmission Date: 20080405
  Serious: Yes (Hospitalization)
  Sender: FDA-Public Use
  Company Number: B0488034A

PATIENT
  Age: 51 Year
  Sex: Female
  Weight: 63.1 kg

DRUGS (5)
  1. VALTREX [Suspect]
     Indication: HERPES ZOSTER
     Route: 048
     Dates: start: 20070914, end: 20070918
  2. VOLTAREN [Suspect]
     Indication: FACET JOINT SYNDROME
     Dates: start: 20070823, end: 20070918
  3. CELESTAMINE TAB [Concomitant]
     Indication: FACET JOINT SYNDROME
     Route: 048
     Dates: start: 20070823
  4. METHYCOBAL [Concomitant]
     Indication: NEUROPATHY PERIPHERAL
     Dosage: 1MG PER DAY
     Route: 048
     Dates: start: 20070904
  5. MUCOSTA [Concomitant]
     Indication: GASTRITIS
     Dosage: 200MG PER DAY
     Route: 048
     Dates: start: 20070823

REACTIONS (4)
  - DEHYDRATION [None]
  - NAUSEA [None]
  - RENAL FAILURE ACUTE [None]
  - VOMITING [None]
